FAERS Safety Report 12950802 (Version 3)
Quarter: 2017Q1

REPORT INFORMATION
  Report Type: Spontaneous
  Country: US (occurrence: US)
  Receive Date: 20161117
  Receipt Date: 20170203
  Transmission Date: 20170428
  Serious: No
  Sender: FDA-Public Use
  Company Number: US-GLAXOSMITHKLINE-US2016GSK169634

PATIENT
  Age: 56 Year
  Sex: Female

DRUGS (1)
  1. NUCALA [Suspect]
     Active Substance: MEPOLIZUMAB
     Indication: ASTHMA
     Dosage: 100 MG, MONTHLY
     Route: 042
     Dates: start: 20161111

REACTIONS (17)
  - Condition aggravated [Not Recovered/Not Resolved]
  - Rash pruritic [Unknown]
  - Rash [Unknown]
  - Back pain [Not Recovered/Not Resolved]
  - Food allergy [Unknown]
  - Fatigue [Not Recovered/Not Resolved]
  - Middle insomnia [Unknown]
  - Abdominal pain upper [Unknown]
  - Pruritus generalised [Unknown]
  - Pain in extremity [Not Recovered/Not Resolved]
  - Malaise [Not Recovered/Not Resolved]
  - Hypophagia [Unknown]
  - Myalgia [Not Recovered/Not Resolved]
  - Muscular weakness [Unknown]
  - Gait disturbance [Not Recovered/Not Resolved]
  - Asthenia [Not Recovered/Not Resolved]
  - Rash erythematous [Unknown]

NARRATIVE: CASE EVENT DATE: 201611
